FAERS Safety Report 5197081-7 (Version None)
Quarter: 2007Q1

REPORT INFORMATION
  Report Type: 
  Country: None (occurrence: None)
  Receive Date: 20070103
  Receipt Date: 20061220
  Transmission Date: 20070707
  Serious: Yes (Death)
  Sender: FDA-Public Use
  Company Number: GB-ELI_LILLY_AND_COMPANY-GB200612003546

PATIENT
  Age: 76 Year
  Sex: Male

DRUGS (2)
  1. XIGRIS [Suspect]
     Indication: SEPSIS
     Dosage: 2.1 MG, EVERY HOUR
     Route: 042
     Dates: start: 20061218, end: 20061220
  2. HEPARIN [Concomitant]
     Indication: ANTICOAGULANT THERAPY
     Dosage: 1000 U, EVERY HOUR

REACTIONS (1)
  - RESPIRATORY FAILURE [None]
